FAERS Safety Report 22522290 (Version 1)
Quarter: 2023Q2

REPORT INFORMATION
  Report Type: Spontaneous
  Country: KR (occurrence: KR)
  Receive Date: 20230605
  Receipt Date: 20230605
  Transmission Date: 20230722
  Serious: Yes (Hospitalization)
  Sender: FDA-Public Use
  Company Number: KR-ORGANON-O2305KOR003270

PATIENT
  Age: 62 Year
  Sex: Female
  Weight: 67.05 kg

DRUGS (7)
  1. COZAAR [Suspect]
     Active Substance: LOSARTAN POTASSIUM
     Indication: Essential hypertension
     Dosage: 50 MILLIGRAM, QD
     Route: 048
     Dates: start: 20180420
  2. LANSOPRAZOLE [Concomitant]
     Active Substance: LANSOPRAZOLE
     Indication: Prophylaxis
     Dosage: 30 MILLIGRAM, QD; UNCLASSIFIED TABLET
     Route: 048
     Dates: start: 20181227
  3. PRAVASTATIN SODIUM [Concomitant]
     Active Substance: PRAVASTATIN SODIUM
     Indication: Angina unstable
     Dosage: 40 MILLIGRAM, QD; UNCLASSIFIED TABLETS
     Route: 048
     Dates: start: 20181227
  4. NICORANDIL [Concomitant]
     Active Substance: NICORANDIL
     Indication: Angina unstable
     Dosage: 10 MILLIGRAM, BID; UNCLASSIFIED TABLET
     Route: 048
     Dates: start: 20171222
  5. EMPAGLIFLOZIN [Concomitant]
     Active Substance: EMPAGLIFLOZIN
     Indication: Type 2 diabetes mellitus
     Dosage: 25 MILLIGRAM, QD; UNCLASSIFIED TABLET
     Route: 048
     Dates: start: 20171222
  6. METFORMIN HYDROCHLORIDE [Concomitant]
     Active Substance: METFORMIN HYDROCHLORIDE
     Indication: Type 2 diabetes mellitus
     Dosage: 1700 MILLIGRAM, BID; UNCLASSIFIED TABLET
     Route: 048
     Dates: start: 20191128
  7. FENOFIBRATE [Concomitant]
     Active Substance: FENOFIBRATE
     Indication: Type 2 diabetes mellitus
     Dosage: 160 MILLIGRAM, QD; UNCLASSIFIED TABLET
     Route: 048
     Dates: start: 20191128

REACTIONS (1)
  - Radiculopathy [Recovered/Resolved]

NARRATIVE: CASE EVENT DATE: 20191230
